FAERS Safety Report 20310152 (Version 2)
Quarter: 2022Q1

REPORT INFORMATION
  Report Type: Spontaneous
  Country: US (occurrence: None)
  Receive Date: 20220107
  Receipt Date: 20220111
  Transmission Date: 20220424
  Serious: Yes (Other)
  Sender: FDA-Public Use
  Company Number: US-Orion Corporation ORION PHARMA-ENT 2022-0001

PATIENT
  Age: 85 Year
  Sex: Female

DRUGS (3)
  1. ENTACAPONE [Suspect]
     Active Substance: ENTACAPONE
     Indication: Parkinson^s disease
     Route: 065
  2. LEVETIRACETAM [Suspect]
     Active Substance: LEVETIRACETAM
     Indication: Seizure prophylaxis
     Route: 065
  3. CARBIDOPA\LEVODOPA [Suspect]
     Active Substance: CARBIDOPA\LEVODOPA
     Indication: Parkinson^s disease
     Route: 065

REACTIONS (10)
  - Fall [Recovered/Resolved]
  - Loss of consciousness [Recovered/Resolved]
  - Femoral neck fracture [Recovered/Resolved]
  - Subarachnoid haemorrhage [Recovered/Resolved]
  - Subdural haematoma [Recovered/Resolved]
  - Encephalopathy [Recovered/Resolved]
  - Agitation [Recovered/Resolved]
  - Confusional state [Recovered/Resolved]
  - Aggression [Recovered/Resolved]
  - Mutism [Recovered/Resolved]
